FAERS Safety Report 4309754-6 (Version None)
Quarter: 2004Q1

REPORT INFORMATION
  Report Type: 
  Country: None (occurrence: None)
  Receive Date: 20040301
  Receipt Date: 20040218
  Transmission Date: 20041129
  Serious: Yes (Other)
  Sender: FDA-Public Use
  Company Number: 2003116065

PATIENT
  Sex: Female

DRUGS (3)
  1. UNISOM [Suspect]
     Indication: VOMITING IN PREGNANCY
     Dosage: 1/2 TABLET BID, ORAL
     Route: 048
  2. ONE-A-DAY (ERGOCALCIFEROL, ASCORBIC ACID, PYRIDOXINE HYDROHCLORDE, CYA [Concomitant]
  3. FOLIC ACID [Concomitant]

REACTIONS (2)
  - COMPLICATIONS OF MATERNAL EXPOSURE TO THERAPEUTIC DRUGS [None]
  - OVARIAN CYSTECTOMY [None]
